FAERS Safety Report 10012948 (Version 1)
Quarter: 2014Q1

REPORT INFORMATION
  Report Type: Spontaneous
  Country: FR (occurrence: FR)
  Receive Date: 20140314
  Receipt Date: 20140314
  Transmission Date: 20141002
  Serious: Yes (Other)
  Sender: FDA-Public Use
  Company Number: PHHY2014FR028913

PATIENT
  Age: 51 Year
  Sex: Female

DRUGS (3)
  1. BENAZEPRIL HYDROCHLORIDE [Suspect]
     Dosage: 1 DF, UNK
     Route: 048
     Dates: start: 20131003
  2. RAMIPRIL [Suspect]
     Dosage: 10 MG, DAILY
     Route: 048
     Dates: start: 2013, end: 20131003
  3. BISOPROLOL [Suspect]
     Dosage: 2.5 MG, DAILY
     Route: 048
     Dates: start: 2013, end: 20131003

REACTIONS (5)
  - Lethargy [Recovered/Resolved]
  - Somnolence [Recovered/Resolved]
  - Dizziness [Recovered/Resolved]
  - Hypotension [Recovered/Resolved]
  - Accidental exposure to product [Unknown]
